FAERS Safety Report 18188707 (Version 2)
Quarter: 2021Q1

REPORT INFORMATION
  Report Type: Report from Study
  Country: IT (occurrence: IT)
  Receive Date: 20200824
  Receipt Date: 20210223
  Transmission Date: 20210419
  Serious: Yes (Hospitalization)
  Sender: FDA-Public Use
  Company Number: IT-TEVA-2020-IT-1817056

PATIENT
  Age: 89 Year
  Sex: Female

DRUGS (6)
  1. CONGESCOR 2,5 MG, COMPRESSE FILM?RIVESTITE [Concomitant]
     Dosage: 2.5 MG
  2. FENTANYL. [Suspect]
     Active Substance: FENTANYL
     Dates: start: 20200101, end: 20200726
  3. ELIQUIS [Concomitant]
     Active Substance: APIXABAN
     Dosage: 10 MG
  4. LASIX [Concomitant]
     Active Substance: FUROSEMIDE
     Dosage: 25 MG
  5. PALEXIA [Concomitant]
     Active Substance: TAPENTADOL HYDROCHLORIDE
     Dosage: 50 MG
  6. OXYBUTYNIN HYDROCHLORIDE [Concomitant]
     Active Substance: OXYBUTYNIN CHLORIDE
     Dosage: 10 MG

REACTIONS (2)
  - Bradypnoea [Recovering/Resolving]
  - Cyanosis [Recovering/Resolving]

NARRATIVE: CASE EVENT DATE: 20200726
